FAERS Safety Report 13876689 (Version 1)
Quarter: 2017Q3

REPORT INFORMATION
  Report Type: Spontaneous
  Country: US (occurrence: None)
  Receive Date: 20170814
  Receipt Date: 20170814
  Transmission Date: 20171127
  Serious: Yes (Hospitalization)
  Sender: FDA-Public Use
  Company Number: None

PATIENT
  Age: 89 Year
  Sex: Male

DRUGS (1)
  1. WARFARIN [Suspect]
     Active Substance: WARFARIN
     Indication: ATRIAL FIBRILLATION
     Dates: start: 20000101

REACTIONS (5)
  - Therapy cessation [None]
  - Haemoglobin decreased [None]
  - Gastrointestinal haemorrhage [None]
  - Gastritis [None]
  - Transient ischaemic attack [None]

NARRATIVE: CASE EVENT DATE: 20170413
